FAERS Safety Report 9829545 (Version 1)
Quarter: 2014Q1

REPORT INFORMATION
  Report Type: Spontaneous
  Country: US (occurrence: US)
  Receive Date: 20140120
  Receipt Date: 20140120
  Transmission Date: 20141002
  Serious: Yes (Hospitalization)
  Sender: FDA-Public Use
  Company Number: US-BIOGENIDEC-2014BI003189

PATIENT
  Age: 22 Year
  Sex: Female

DRUGS (1)
  1. TECFIDERA [Suspect]
     Indication: MULTIPLE SCLEROSIS
     Route: 048
     Dates: start: 20131118, end: 20131129

REACTIONS (7)
  - Nuclear magnetic resonance imaging brain abnormal [Unknown]
  - Multiple sclerosis [Recovered/Resolved]
  - Loss of consciousness [Unknown]
  - Nausea [Unknown]
  - Mobility decreased [Recovered/Resolved]
  - Aphasia [Recovered/Resolved]
  - Pain in extremity [Not Recovered/Not Resolved]
